FAERS Safety Report 10333278 (Version 1)
Quarter: 2014Q3

REPORT INFORMATION
  Report Type: Spontaneous
  Country: US (occurrence: US)
  Receive Date: 20140722
  Receipt Date: 20140722
  Transmission Date: 20150326
  Serious: No
  Sender: FDA-Public Use
  Company Number: US-PFIZER INC-2014200901

PATIENT
  Age: 55 Year
  Sex: Female
  Weight: 66.67 kg

DRUGS (3)
  1. TRIAMTERENE AND HYDROCHLOROTHIZIDE [Concomitant]
     Indication: OEDEMA
     Dosage: UNK, AS NEEDED
  2. NEURONTIN [Suspect]
     Active Substance: GABAPENTIN
     Indication: NERVE INJURY
     Dosage: UNK
  3. NEURONTIN [Suspect]
     Active Substance: GABAPENTIN
     Indication: NEUROPATHY PERIPHERAL

REACTIONS (1)
  - Drug ineffective [Unknown]
